FAERS Safety Report 18529560 (Version 1)
Quarter: 2020Q4

REPORT INFORMATION
  Report Type: Spontaneous
  Country: US (occurrence: US)
  Receive Date: 20201121
  Receipt Date: 20201121
  Transmission Date: 20210114
  Serious: No
  Sender: FDA-Public Use
  Company Number: US-TARO-2020TAR01281

PATIENT

DRUGS (2)
  1. PROLIA [Concomitant]
     Active Substance: DENOSUMAB
     Indication: VITAMIN SUPPLEMENTATION
     Dosage: ONE SHOT EVERY 6 MONTHS
     Route: 065
  2. CARBAMAZEPINE TABLETS USP 200 MG [Suspect]
     Active Substance: CARBAMAZEPINE
     Indication: FACIAL NEURALGIA
     Dosage: RIGHT NOW USING 1.5 IN MORNING 1.5 AT NOON AND 400 MG IN EVENING
     Route: 048

REACTIONS (1)
  - Constipation [Not Recovered/Not Resolved]

NARRATIVE: CASE EVENT DATE: 202007
